FAERS Safety Report 7426358-7 (Version None)
Quarter: 2011Q2

REPORT INFORMATION
  Report Type: 
  Country: None (occurrence: None)
  Receive Date: 20110420
  Receipt Date: 20110112
  Transmission Date: 20111010
  Serious: Yes (Hospitalization, Other)
  Sender: FDA-Public Use
  Company Number: US-BAYER-201037470NA

PATIENT
  Age: 18 Year
  Sex: Female
  Weight: 73 kg

DRUGS (3)
  1. YASMIN [Suspect]
     Indication: PREMENSTRUAL SYNDROME
     Dosage: UNK
     Route: 048
     Dates: start: 20050714, end: 20071027
  2. LUVOX [Concomitant]
     Dosage: 100 MG, QD
     Route: 048
  3. PRILOSEC [Concomitant]

REACTIONS (5)
  - BILIARY DYSKINESIA [None]
  - GALLBLADDER INJURY [None]
  - EMOTIONAL DISTRESS [None]
  - SCAR [None]
  - PAIN [None]
